FAERS Safety Report 14912912 (Version 2)
Quarter: 2018Q2

REPORT INFORMATION
  Report Type: Spontaneous
  Country: LV (occurrence: LV)
  Receive Date: 20180518
  Receipt Date: 20180607
  Transmission Date: 20180711
  Serious: Yes (Other)
  Sender: FDA-Public Use
  Company Number: LV-GLAXOSMITHKLINE-LV2018082935

PATIENT
  Age: 72 Year
  Sex: Male

DRUGS (19)
  1. TRAMADOL. [Suspect]
     Active Substance: TRAMADOL
     Indication: POSTOPERATIVE ANALGESIA
  2. CHLORHEXIDINE [Concomitant]
     Active Substance: CHLORHEXIDINE
     Indication: PRODUCT USED FOR UNKNOWN INDICATION
     Dosage: UNK
     Route: 065
  3. DICLOFENAC SODIUM. [Suspect]
     Active Substance: DICLOFENAC SODIUM
     Indication: POST PROCEDURAL COMPLICATION
     Dosage: 75MG/3ML X 2
     Route: 042
  4. TRAMADOL. [Suspect]
     Active Substance: TRAMADOL
     Indication: PAIN
     Dosage: UNK
     Route: 065
  5. DEXAMETHASONE. [Concomitant]
     Active Substance: DEXAMETHASONE
     Indication: PRODUCT USED FOR UNKNOWN INDICATION
     Dosage: UNK
     Route: 065
  6. BETALOC ZOK [Concomitant]
     Active Substance: METOPROLOL SUCCINATE
     Indication: PRODUCT USED FOR UNKNOWN INDICATION
     Dosage: UNK
     Route: 065
  7. CORDARONE TABLETS [Concomitant]
     Indication: PRODUCT USED FOR UNKNOWN INDICATION
     Dosage: UNK
     Route: 065
  8. CEFTRIAXONE. [Suspect]
     Active Substance: CEFTRIAXONE
     Indication: POST PROCEDURAL COMPLICATION
     Dosage: UNK
     Route: 065
  9. AMPICILLIN [Suspect]
     Active Substance: AMPICILLIN
     Indication: POST PROCEDURAL COMPLICATION
     Dosage: UNK
     Route: 065
  10. DALACIN C [Suspect]
     Active Substance: CLINDAMYCIN PHOSPHATE
     Indication: POST PROCEDURAL COMPLICATION
     Dosage: 2400 MG, QD
     Route: 065
  11. METROGYL [Suspect]
     Active Substance: METRONIDAZOLE
     Indication: POST PROCEDURAL COMPLICATION
     Dosage: 15 MG/KG, Q8H
     Route: 065
  12. TRAMADOL. [Suspect]
     Active Substance: TRAMADOL
     Indication: PAIN
     Dosage: 200 MG, QD
     Route: 030
     Dates: start: 20101127
  13. AMPICILLIN [Suspect]
     Active Substance: AMPICILLIN
     Indication: NECROTISING FASCIITIS
     Dosage: UNK
     Route: 065
  14. GENTACIDIN [Suspect]
     Active Substance: GENTAMICIN SULFATE
     Indication: POST PROCEDURAL COMPLICATION
     Dosage: UNK
     Route: 065
  15. DALACIN C [Suspect]
     Active Substance: CLINDAMYCIN PHOSPHATE
     Indication: NECROTISING FASCIITIS
     Dosage: UNK
     Route: 065
  16. METROGYL [Suspect]
     Active Substance: METRONIDAZOLE
     Indication: NECROTISING FASCIITIS
     Dosage: UNK
     Route: 065
  17. DIAZEPAM. [Concomitant]
     Active Substance: DIAZEPAM
     Indication: PRODUCT USED FOR UNKNOWN INDICATION
     Dosage: UNK
     Route: 065
  18. CEFAZOLIN [Suspect]
     Active Substance: CEFAZOLIN
     Indication: POST PROCEDURAL COMPLICATION
     Dosage: 3000 MG, QD
     Route: 042
     Dates: start: 20101124
  19. GELOFUSINE [Concomitant]
     Active Substance: GELATIN\SODIUM CHLORIDE
     Indication: PRODUCT USED FOR UNKNOWN INDICATION
     Dosage: UNK
     Route: 065

REACTIONS (4)
  - Duodenal ulcer [Unknown]
  - Enterocolitis [Unknown]
  - Gastrooesophageal sphincter insufficiency [Unknown]
  - Gastric mucosa erythema [Unknown]
